FAERS Safety Report 13265530 (Version 4)
Quarter: 2017Q3

REPORT INFORMATION
  Report Type: Report from Study
  Country: US (occurrence: US)
  Receive Date: 20170223
  Receipt Date: 20170710
  Transmission Date: 20171127
  Serious: Yes (Hospitalization)
  Sender: FDA-Public Use
  Company Number: US-CELGENEUS-USA-2017026317

PATIENT
  Age: 54 Year
  Sex: Male

DRUGS (18)
  1. MULTIVITAMINS [Concomitant]
     Active Substance: VITAMINS
     Indication: PRODUCT USED FOR UNKNOWN INDICATION
     Route: 065
  2. AZTREONAM. [Concomitant]
     Active Substance: AZTREONAM
     Indication: BODY TEMPERATURE
     Dosage: 1 GRAM
     Route: 041
     Dates: start: 20170208, end: 20170215
  3. FOLIC ACID. [Concomitant]
     Active Substance: FOLIC ACID
     Indication: PRODUCT USED FOR UNKNOWN INDICATION
     Route: 065
  4. VANCOMYCIN [Concomitant]
     Active Substance: VANCOMYCIN
     Indication: BODY TEMPERATURE
     Dosage: 1 GRAM
     Route: 041
     Dates: start: 20170208, end: 20170215
  5. CODEINE/GUAIFENESIN [Concomitant]
     Active Substance: CODEINE\GUAIFENESIN
     Indication: COUGH
     Route: 065
     Dates: start: 20170208
  6. ONDANSETRON [Concomitant]
     Active Substance: ONDANSETRON
     Indication: NAUSEA
     Route: 065
     Dates: start: 20170127
  7. MIRTAZAPINE. [Concomitant]
     Active Substance: MIRTAZAPINE
     Indication: DEPRESSION
     Route: 065
     Dates: start: 20170208
  8. COLACE [Concomitant]
     Active Substance: DOCUSATE SODIUM
     Indication: CONSTIPATION
     Route: 065
     Dates: start: 20170119
  9. CARBOPLATIN. [Suspect]
     Active Substance: CARBOPLATIN
     Indication: NON-SMALL CELL LUNG CANCER
     Dosage: AUC OF 6MG/ML/MIN
     Route: 041
  10. ATIVAN [Concomitant]
     Active Substance: LORAZEPAM
     Indication: ANXIETY
     Route: 065
  11. NYSTATIN. [Concomitant]
     Active Substance: NYSTATIN
     Indication: ORAL INFECTION
     Route: 065
     Dates: start: 20170208
  12. AIRBORNE [Concomitant]
     Active Substance: HERBALS\MINERALS\VITAMINS
     Indication: PRODUCT USED FOR UNKNOWN INDICATION
     Route: 065
  13. ABRAXANE [Suspect]
     Active Substance: PACLITAXEL
     Indication: NON-SMALL CELL LUNG CANCER
     Route: 050
     Dates: start: 20170127
  14. ATEZOLIZUMAB. [Suspect]
     Active Substance: ATEZOLIZUMAB
     Indication: NON-SMALL CELL LUNG CANCER
     Route: 041
     Dates: start: 20170127
  15. OXYCODONE HYDROCHLORIDE/PARACETAMOL [Concomitant]
     Active Substance: ACETAMINOPHEN\OXYCODONE HYDROCHLORIDE
     Indication: NAUSEA
     Route: 065
     Dates: start: 20170127
  16. BENZONATATE. [Concomitant]
     Active Substance: BENZONATATE
     Indication: COUGH
     Route: 065
     Dates: start: 20170208
  17. KEPPRA [Concomitant]
     Active Substance: LEVETIRACETAM
     Indication: SEIZURE
     Route: 065
     Dates: start: 20170109
  18. PROCHLORPERAZINE. [Concomitant]
     Active Substance: PROCHLORPERAZINE
     Indication: PRODUCT USED FOR UNKNOWN INDICATION
     Route: 065

REACTIONS (2)
  - Pericardial effusion [Recovered/Resolved with Sequelae]
  - Cardiac tamponade [Recovered/Resolved with Sequelae]

NARRATIVE: CASE EVENT DATE: 20170203
